FAERS Safety Report 22190802 (Version 1)
Quarter: 2023Q2

REPORT INFORMATION
  Report Type: Spontaneous
  Country: JP (occurrence: JP)
  Receive Date: 20230410
  Receipt Date: 20230410
  Transmission Date: 20230721
  Serious: Yes (Death, Other)
  Sender: FDA-Public Use
  Company Number: JP-SPECGX-T202300931

PATIENT
  Age: 6 Decade
  Sex: Male

DRUGS (10)
  1. METHADONE [Suspect]
     Active Substance: METHADONE HYDROCHLORIDE
     Indication: Cancer pain
     Dosage: 30 MILLIGRAM, QD
     Route: 048
  2. METHADONE [Suspect]
     Active Substance: METHADONE HYDROCHLORIDE
     Dosage: 60 MILLIGRAM, QD
     Route: 048
  3. METHADONE [Suspect]
     Active Substance: METHADONE HYDROCHLORIDE
     Dosage: 105 MILLIGRAM, QD
     Route: 048
  4. METHADONE [Suspect]
     Active Substance: METHADONE HYDROCHLORIDE
     Dosage: 200 MILLIGRAM, QD
     Route: 048
  5. METHADONE [Suspect]
     Active Substance: METHADONE HYDROCHLORIDE
     Dosage: 280 MILLIGRAM, QD
     Route: 048
  6. METHADONE [Suspect]
     Active Substance: METHADONE HYDROCHLORIDE
     Dosage: 90 MILLIGRAM, QD
     Route: 048
  7. OXYCODONE [Concomitant]
     Active Substance: OXYCODONE
     Indication: Cancer pain
     Dosage: UNK
     Route: 065
  8. OXYCODONE [Concomitant]
     Active Substance: OXYCODONE
     Dosage: 115 MILLIGRAM, QD
     Route: 065
  9. OXYCODONE [Concomitant]
     Active Substance: OXYCODONE
     Dosage: 48 MILLIGRAM, QD
     Route: 065
  10. OXYCODONE [Concomitant]
     Active Substance: OXYCODONE
     Dosage: 580 MILLIGRAM, QD
     Route: 065

REACTIONS (5)
  - Colon cancer [Fatal]
  - Neoplasm progression [Fatal]
  - Intestinal stenosis [Unknown]
  - Stent placement [Unknown]
  - Ileus [Unknown]
